FAERS Safety Report 13249090 (Version 1)
Quarter: 2017Q1

REPORT INFORMATION
  Report Type: Spontaneous
  Country: US (occurrence: US)
  Receive Date: 20170218
  Receipt Date: 20170218
  Transmission Date: 20170428
  Serious: No
  Sender: FDA-Public Use
  Company Number: US-ALLERGAN-1652959US

PATIENT
  Age: 69 Year
  Sex: Female

DRUGS (2)
  1. SIMVASTATIN. [Concomitant]
     Active Substance: SIMVASTATIN
     Indication: BLOOD CHOLESTEROL INCREASED
     Dosage: 20 MG, QD
     Route: 048
  2. RESTASIS [Suspect]
     Active Substance: CYCLOSPORINE
     Indication: HALO VISION
     Dosage: 2 GTT, BID
     Route: 047
     Dates: start: 20160301, end: 20160327

REACTIONS (2)
  - Eye irritation [Unknown]
  - Off label use [Unknown]

NARRATIVE: CASE EVENT DATE: 201603
